FAERS Safety Report 20299269 (Version 1)
Quarter: 2022Q1

REPORT INFORMATION
  Report Type: Spontaneous
  Country: US (occurrence: None)
  Receive Date: 20220104
  Receipt Date: 20220104
  Transmission Date: 20220423
  Serious: Yes (Other)
  Sender: FDA-Public Use
  Company Number: None

PATIENT
  Age: 35 Year
  Sex: Male
  Weight: 90 kg

DRUGS (1)
  1. BUPRENORPHINE HYDROCHLORIDE\NALOXONE HYDROCHLORIDE [Suspect]
     Active Substance: BUPRENORPHINE HYDROCHLORIDE\NALOXONE HYDROCHLORIDE
     Indication: Drug use disorder
     Dosage: OTHER FREQUENCY : QD;?
     Route: 060
     Dates: start: 20211104

REACTIONS (4)
  - Abdominal discomfort [None]
  - Nausea [None]
  - Vomiting [None]
  - Product dosage form issue [None]

NARRATIVE: CASE EVENT DATE: 20211227
